FAERS Safety Report 8410457-7 (Version None)
Quarter: 2012Q2

REPORT INFORMATION
  Report Type: 
  Country: None (occurrence: None)
  Receive Date: 20120605
  Receipt Date: 20120530
  Transmission Date: 20120825
  Serious: Yes (Hospitalization, Disabling, Other)
  Sender: FDA-Public Use
  Company Number: US-TEVA-306861USA

PATIENT
  Age: 38 Year
  Sex: Male

DRUGS (1)
  1. PROPOXYPHENE NAPSYLATE W/ ACETAMINOPHEN [Suspect]
     Dates: start: 20100108, end: 20100513

REACTIONS (9)
  - MUSCLE SPASTICITY [None]
  - VENTRICULAR FIBRILLATION [None]
  - ARRHYTHMIA [None]
  - PAIN [None]
  - HYPOTENSION [None]
  - LACERATION [None]
  - CARDIAC ARREST [None]
  - FALL [None]
  - HYPOXIC-ISCHAEMIC ENCEPHALOPATHY [None]
